FAERS Safety Report 24718286 (Version 1)
Quarter: 2024Q4

REPORT INFORMATION
  Report Type: Spontaneous
  Country: CN (occurrence: CN)
  Receive Date: 20241210
  Receipt Date: 20241210
  Transmission Date: 20250115
  Serious: Yes (Hospitalization, Other)
  Sender: AMGEN
  Company Number: CN-AMGEN-CHNSP2024240156

PATIENT
  Age: 33 Year
  Sex: Female
  Weight: 57 kg

DRUGS (1)
  1. UPLIZNA [Suspect]
     Active Substance: INEBILIZUMAB-CDON
     Indication: Neuromyelitis optica spectrum disorder
     Dosage: 300 MILLIGRAM, ONE TIME DOSE
     Route: 040
     Dates: start: 20240718, end: 20240718

REACTIONS (2)
  - Neuromyelitis optica spectrum disorder [Unknown]
  - Drug eruption [Unknown]

NARRATIVE: CASE EVENT DATE: 20240719
